FAERS Safety Report 12050130 (Version 2)
Quarter: 2016Q1

REPORT INFORMATION
  Report Type: Spontaneous
  Country: None (occurrence: US)
  Receive Date: 20160208
  Receipt Date: 20160315
  Transmission Date: 20160526
  Serious: No
  Sender: FDA-Public Use
  Company Number: US-RARE DISEASE THERAPEUTICS, INC.-1047493

PATIENT
  Age: 26 Year
  Sex: Female
  Weight: 144.2 kg

DRUGS (1)
  1. CYSTADANE [Suspect]
     Active Substance: BETAINE
     Indication: CYSTATHIONINE BETA-SYNTHASE DEFICIENCY
     Route: 048
     Dates: start: 20150619

REACTIONS (2)
  - Overdose [Unknown]
  - Cyst [Unknown]

NARRATIVE: CASE EVENT DATE: 20160112
